FAERS Safety Report 6796945-8 (Version None)
Quarter: 2010Q2

REPORT INFORMATION
  Report Type: 
  Country: None (occurrence: None)
  Receive Date: 20100624
  Receipt Date: 20100610
  Transmission Date: 20101027
  Serious: Yes (Other)
  Sender: FDA-Public Use
  Company Number: JPI-P-010993

PATIENT
  Age: 54 Year
  Sex: Female
  Weight: 58.9676 kg

DRUGS (8)
  1. XYREM [Suspect]
     Indication: RAPID EYE MOVEMENTS SLEEP ABNORMAL
     Dosage: 4 GM (4 GM, 1 IN 1 D), ORAL; 9 GM (4.5 GM, 2 IN 1 D), ORAL; 4.5 GM (4.5 GM, 1 IN 1 D), ORAL
     Route: 048
     Dates: start: 20100504, end: 20100501
  2. XYREM [Suspect]
     Indication: RAPID EYE MOVEMENTS SLEEP ABNORMAL
     Dosage: 4 GM (4 GM, 1 IN 1 D), ORAL; 9 GM (4.5 GM, 2 IN 1 D), ORAL; 4.5 GM (4.5 GM, 1 IN 1 D), ORAL
     Route: 048
     Dates: start: 20100501, end: 20100525
  3. XYREM [Suspect]
     Indication: RAPID EYE MOVEMENTS SLEEP ABNORMAL
     Dosage: 4 GM (4 GM, 1 IN 1 D), ORAL; 9 GM (4.5 GM, 2 IN 1 D), ORAL; 4.5 GM (4.5 GM, 1 IN 1 D), ORAL
     Route: 048
     Dates: start: 20100526, end: 20100526
  4. TAMOXIFEN [Concomitant]
  5. ESCITALOPRAM OXALATE [Concomitant]
  6. GUANFACINE HYDROCHLORIDE [Concomitant]
  7. GABAPENTIN [Concomitant]
  8. CLONAZEPAM [Concomitant]

REACTIONS (8)
  - CONVULSION [None]
  - DECREASED APPETITE [None]
  - DIZZINESS [None]
  - DRY MOUTH [None]
  - EXCORIATION [None]
  - FALL [None]
  - NAUSEA [None]
  - OROPHARYNGEAL PAIN [None]
